FAERS Safety Report 8984225 (Version 1)
Quarter: 2012Q4

REPORT INFORMATION
  Report Type: Spontaneous
  Country: DK (occurrence: None)
  Receive Date: 20121212
  Receipt Date: 20121212
  Transmission Date: 20130627
  Serious: Yes (Disabling)
  Sender: FDA-Public Use
  Company Number: 2012MA013930

PATIENT
  Age: 23 Year
  Sex: Female

DRUGS (8)
  1. SERTRALINE HYDROCHLORIDE [Suspect]
     Indication: DEPRESSION
     Route: 048
     Dates: start: 2008, end: 20121005
  2. RISPERIDONE [Concomitant]
  3. PIPAMPERONE [Concomitant]
  4. VENLAFAXINE [Concomitant]
  5. MIRTAZAPINE [Concomitant]
  6. PROMETHAZINE [Concomitant]
  7. LEVOTHYROXINE SODIUM [Concomitant]
  8. DEPO-PROVERA [Concomitant]

REACTIONS (1)
  - Tic [None]
